FAERS Safety Report 10596647 (Version 1)
Quarter: 2014Q4

REPORT INFORMATION
  Report Type: Report from Study
  Country: US (occurrence: US)
  Receive Date: 20141120
  Receipt Date: 20141120
  Transmission Date: 20150529
  Serious: Yes (Hospitalization)
  Sender: FDA-Public Use
  Company Number: US-SA-2014SA156889

PATIENT
  Age: 68 Year
  Sex: Female

DRUGS (1)
  1. LANTUS [Suspect]
     Active Substance: INSULIN GLARGINE
     Indication: DIABETES MELLITUS
     Dosage: DOSE-30-35 U
     Route: 065

REACTIONS (6)
  - Neck pain [Unknown]
  - Pain [Unknown]
  - West Nile virus test positive [Unknown]
  - Rash [Unknown]
  - Vomiting [Unknown]
  - Weight increased [Unknown]
